FAERS Safety Report 9479532 (Version 5)
Quarter: 2015Q1

REPORT INFORMATION
  Report Type: Spontaneous
  Country: AR (occurrence: AR)
  Receive Date: 20130827
  Receipt Date: 20150209
  Transmission Date: 20150721
  Serious: Yes (Other)
  Sender: FDA-Public Use
  Company Number: AR-BIOMARINAP-AR-2013-101360

PATIENT
  Age: 26 Year
  Sex: Male
  Weight: 49 kg

DRUGS (1)
  1. NAGLAZYME [Suspect]
     Active Substance: GALSULFASE
     Indication: MUCOPOLYSACCHARIDOSIS VI
     Dosage: 45 MG, QOW
     Route: 041
     Dates: start: 20121002

REACTIONS (1)
  - Cervical cord compression [Unknown]

NARRATIVE: CASE EVENT DATE: 20130821
